FAERS Safety Report 8767268 (Version 1)
Quarter: 2012Q4

REPORT INFORMATION
  Report Type: 
  Country: FR (occurrence: FR)
  Receive Date: 20120904
  Receipt Date: 20120904
  Transmission Date: 20130627
  Serious: Yes (Hospitalization)
  Sender: FDA-Public Use
  Company Number: FR-US-EMD SERONO, INC.-7157605

PATIENT
  Age: 52 Year
  Sex: Male

DRUGS (1)
  1. INTERFERON BETA [Suspect]
     Indication: MULTIPLE SCLEROSIS
     Dates: start: 2008

REACTIONS (1)
  - Thrombotic microangiopathy [Not Recovered/Not Resolved]
